FAERS Safety Report 15493238 (Version 1)
Quarter: 2018Q4

REPORT INFORMATION
  Report Type: Spontaneous
  Country: CN (occurrence: CN)
  Receive Date: 20181012
  Receipt Date: 20181012
  Transmission Date: 20190205
  Serious: Yes (Hospitalization, Other)
  Sender: FDA-Public Use
  Company Number: CN-ELI_LILLY_AND_COMPANY-CN201809012257

PATIENT
  Age: 66 Year
  Sex: Male

DRUGS (5)
  1. CALCIUM FOLINATE [Suspect]
     Active Substance: LEUCOVORIN CALCIUM
     Indication: COLON CANCER METASTATIC
     Dosage: 200 MG, CYCLICAL (EVERY 15 DAYS)
     Route: 065
     Dates: start: 201511
  2. 5-FLUOROURACIL                     /00098801/ [Suspect]
     Active Substance: FLUOROURACIL
     Indication: COLON CANCER METASTATIC
     Dosage: 0.5 G, CYCLICAL (EVERY 15 DAYS)
     Route: 042
     Dates: start: 201511
  3. 5-FLUOROURACIL                     /00098801/ [Suspect]
     Active Substance: FLUOROURACIL
     Dosage: 3.8 G, CYCLICAL (EVERY 15 DAYS)
     Route: 042
     Dates: start: 201511
  4. IRINOTECAN [Suspect]
     Active Substance: IRINOTECAN
     Indication: COLON CANCER METASTATIC
     Dosage: 300 MG, CYCLICAL (EVERY 15 DAYS)
     Route: 065
     Dates: start: 201511
  5. ERBITUX [Suspect]
     Active Substance: CETUXIMAB
     Indication: COLON CANCER METASTATIC
     Dosage: 700 MG, CYCLICAL (EVERY 15 DAYS)
     Route: 065
     Dates: start: 201511

REACTIONS (6)
  - Diarrhoea [Unknown]
  - Off label use [Unknown]
  - Gastrointestinal disorder [Unknown]
  - Staphylococcal infection [Recovering/Resolving]
  - Dermatitis acneiform [Recovering/Resolving]
  - Paronychia [Unknown]

NARRATIVE: CASE EVENT DATE: 201606
